FAERS Safety Report 21396704 (Version 1)
Quarter: 2022Q3

REPORT INFORMATION
  Report Type: Spontaneous
  Country: US (occurrence: None)
  Receive Date: 20220930
  Receipt Date: 20220930
  Transmission Date: 20221027
  Serious: No
  Sender: FDA-Public Use
  Company Number: US-Spark Therapeutics, Inc.-US-SPK-21-00082

PATIENT
  Age: 7 Year
  Sex: Male

DRUGS (35)
  1. LUXTURNA [Suspect]
     Active Substance: VORETIGENE NEPARVOVEC-RZYL
     Indication: Leber^s congenital amaurosis
     Dates: start: 20210707, end: 20210707
  2. LUXTURNA [Suspect]
     Active Substance: VORETIGENE NEPARVOVEC-RZYL
     Dates: start: 20210721, end: 20210721
  3. LUXTURNA [Suspect]
     Active Substance: VORETIGENE NEPARVOVEC-RZYL
     Indication: Leber^s congenital amaurosis
     Dates: start: 20210707, end: 20210707
  4. LUXTURNA [Suspect]
     Active Substance: VORETIGENE NEPARVOVEC-RZYL
     Dates: start: 20210721, end: 20210721
  5. PRED FORTE [Suspect]
     Active Substance: PREDNISOLONE ACETATE
     Indication: Product used for unknown indication
  6. ORAPRED [Suspect]
     Active Substance: PREDNISOLONE SODIUM PHOSPHATE
     Indication: Product used for unknown indication
     Dosage: 15 MG/ 5 ML SOLUTION. TAKE 7.8 ML (23.4 MG TOTAL) BY MOUTH 1 TIME A DAY. ADMINISTER AFTER MEALS OR W
     Dates: start: 20210609, end: 20210810
  7. KENALOG [Suspect]
     Active Substance: TRIAMCINOLONE ACETONIDE
     Indication: Product used for unknown indication
     Dates: start: 20210707, end: 20210707
  8. KENALOG [Suspect]
     Active Substance: TRIAMCINOLONE ACETONIDE
     Dates: start: 20210721, end: 20210721
  9. ATROPINE [Concomitant]
     Active Substance: ATROPINE
     Indication: Product used for unknown indication
     Dates: end: 20210721
  10. VIGAMOX [Concomitant]
     Active Substance: MOXIFLOXACIN HYDROCHLORIDE
     Indication: Product used for unknown indication
     Dosage: 1 DROP
     Route: 031
     Dates: start: 20210707, end: 20210707
  11. VIGAMOX [Concomitant]
     Active Substance: MOXIFLOXACIN HYDROCHLORIDE
     Route: 031
     Dates: end: 20210714
  12. VIGAMOX [Concomitant]
     Active Substance: MOXIFLOXACIN HYDROCHLORIDE
     Dosage: 1 DROP
     Route: 031
     Dates: start: 20210721, end: 20210721
  13. VIGAMOX [Concomitant]
     Active Substance: MOXIFLOXACIN HYDROCHLORIDE
     Route: 031
     Dates: end: 20210728
  14. COSOPT [Concomitant]
     Active Substance: DORZOLAMIDE HYDROCHLORIDE\TIMOLOL MALEATE
     Indication: Product used for unknown indication
     Dosage: 22.3-6.8 MG/ML
     Dates: start: 20210714
  15. OFIRMEV [Concomitant]
     Active Substance: ACETAMINOPHEN
     Indication: Product used for unknown indication
     Dosage: 15 MG/KG ? 23.5 KG, MAXIMUM OF 4 DOSES PER DAY.
     Route: 042
     Dates: start: 20210707, end: 20210707
  16. OFIRMEV [Concomitant]
     Active Substance: ACETAMINOPHEN
     Dosage: 15 MG/KG ? 23.5 KG
     Route: 042
     Dates: start: 20210721, end: 20210721
  17. BALANCED SALT SOLUTION (BSS) [Concomitant]
     Indication: Product used for unknown indication
     Dosage: AT LEAST TWO 15 ML VIALS
     Dates: start: 20210707, end: 20210707
  18. BALANCED SALT SOLUTION (BSS) [Concomitant]
     Dates: start: 20210721, end: 20210721
  19. MARCAINE [Concomitant]
     Active Substance: BUPIVACAINE HYDROCHLORIDE
     Indication: Product used for unknown indication
     Dates: start: 20210707, end: 20210707
  20. MARCAINE [Concomitant]
     Active Substance: BUPIVACAINE HYDROCHLORIDE
     Dates: start: 20210721, end: 20210721
  21. ANCEF [Concomitant]
     Active Substance: CEFAZOLIN SODIUM
     Indication: Product used for unknown indication
     Dosage: 100 MG / 0.5 ML IN NORMAL SALINE
     Route: 057
     Dates: start: 20210707, end: 20210707
  22. ANCEF [Concomitant]
     Active Substance: CEFAZOLIN SODIUM
     Dosage: 100 MG / 0.5 ML IN NORMAL SALINE
     Route: 057
     Dates: start: 20210721, end: 20210721
  23. EPINEPHRINE [Concomitant]
     Active Substance: EPINEPHRINE
     Indication: Product used for unknown indication
     Dates: start: 20210707, end: 20210707
  24. EPINEPHRINE [Concomitant]
     Active Substance: EPINEPHRINE
     Dates: start: 20210721, end: 20210721
  25. DECADRON [Concomitant]
     Active Substance: DEXAMETHASONE
     Indication: Product used for unknown indication
     Dosage: 40 MG IN BALANCED SALT SOLUTION
     Dates: start: 20210707, end: 20210707
  26. MAXITROL [Concomitant]
     Active Substance: DEXAMETHASONE\NEOMYCIN SULFATE\POLYMYXIN B SULFATE
     Indication: Product used for unknown indication
     Dosage: APPLY THIN RIBBON TO THE AFFECTED EYE
     Route: 047
     Dates: start: 20210707, end: 20210707
  27. MAXITROL [Concomitant]
     Active Substance: DEXAMETHASONE\NEOMYCIN SULFATE\POLYMYXIN B SULFATE
     Dosage: APPLY THIN RIBBON TO THE AFFECTED EYE
     Route: 047
     Dates: start: 20210721, end: 20210721
  28. BETADINE [Concomitant]
     Active Substance: POVIDONE-IODINE
     Indication: Product used for unknown indication
     Dosage: 1 BOTTLE
     Dates: start: 20210707, end: 20210707
  29. BETADINE [Concomitant]
     Active Substance: POVIDONE-IODINE
     Dosage: 1 BOTTLE
     Dates: start: 20210721, end: 20210721
  30. TETRACAINE HYDROCHLORIDE [Concomitant]
     Active Substance: TETRACAINE HYDROCHLORIDE
     Indication: Product used for unknown indication
     Dosage: PRIOR TO REFRACTION DROPS
     Dates: start: 20210707, end: 20210707
  31. TETRACAINE HYDROCHLORIDE [Concomitant]
     Active Substance: TETRACAINE HYDROCHLORIDE
     Dosage: PRIOR TO REFRACTION DROPS.
     Dates: start: 20210721, end: 20210721
  32. COMBO EYE DROPS [Concomitant]
     Indication: Product used for unknown indication
     Dosage: ADMINISTER TO LEFT EYE FOR EUA EVERY 10 MINUTES THREE TIMES BEFORE SURGERY, CYCLOPENTOLATE 1% - TROP
     Dates: start: 20210707, end: 20210707
  33. COMBO EYE DROPS [Concomitant]
     Dosage: ADMINISTER TO RIGHT EYE FOR EUA EVERY 10 MINUTES THREE TIMES BEFORE SURGERY, CYCLOPENTOLATE 1% - TRO
     Dates: start: 20210721, end: 20210721
  34. ISOPTO ATROPINE [Concomitant]
     Active Substance: ATROPINE SULFATE
     Indication: Product used for unknown indication
     Dates: start: 20210707, end: 20210707
  35. ISOPTO ATROPINE [Concomitant]
     Active Substance: ATROPINE SULFATE
     Dates: start: 20210721, end: 20210721

REACTIONS (2)
  - Ocular hypertension [Not Recovered/Not Resolved]
  - Intraocular pressure increased [Not Recovered/Not Resolved]

NARRATIVE: CASE EVENT DATE: 20210714
